FAERS Safety Report 25386052 (Version 1)
Quarter: 2025Q2

REPORT INFORMATION
  Report Type: Report from Study
  Country: CA (occurrence: CA)
  Receive Date: 20250602
  Receipt Date: 20250602
  Transmission Date: 20250716
  Serious: Yes (Death)
  Sender: ABBVIE
  Company Number: CA-ABBVIE-6307720

PATIENT
  Age: 83 Year
  Sex: Male

DRUGS (1)
  1. LUPRON [Suspect]
     Active Substance: LEUPROLIDE ACETATE
     Indication: Prostate cancer
     Dosage: FORM STRENGTH 22.5 MG? PRE-FILLED SYRINGE
     Route: 065
     Dates: start: 20240326

REACTIONS (1)
  - Death [Fatal]

NARRATIVE: CASE EVENT DATE: 20250528
